FAERS Safety Report 24344361 (Version 1)
Quarter: 2024Q3

REPORT INFORMATION
  Report Type: Spontaneous
  Country: TH (occurrence: TH)
  Receive Date: 20240920
  Receipt Date: 20240920
  Transmission Date: 20241016
  Serious: Yes (Other)
  Sender: JOHNSON AND JOHNSON
  Company Number: TH-JNJFOC-20240940367

PATIENT
  Sex: Male

DRUGS (1)
  1. SIMPONI [Suspect]
     Active Substance: GOLIMUMAB
     Indication: Ankylosing spondylitis
     Dosage: HAD BEEN USING SIMPONI FOR AT LEAST 1 YEAR
     Route: 058
     Dates: start: 2023, end: 20240914

REACTIONS (1)
  - Tuberculosis [Recovering/Resolving]
